FAERS Safety Report 10574483 (Version 1)
Quarter: 2014Q4

REPORT INFORMATION
  Report Type: Spontaneous
  Country: US (occurrence: US)
  Receive Date: 20141110
  Receipt Date: 20141110
  Transmission Date: 20150529
  Serious: Yes (Hospitalization)
  Sender: FDA-Public Use
  Company Number: US-ELI_LILLY_AND_COMPANY-US201410010350

PATIENT
  Age: 51 Year
  Sex: Female

DRUGS (4)
  1. CYMBALTA [Suspect]
     Active Substance: DULOXETINE HYDROCHLORIDE
     Indication: PRODUCT USED FOR UNKNOWN INDICATION
     Dosage: UNK, UNKNOWN
     Route: 065
  2. WARFARIN [Concomitant]
     Active Substance: WARFARIN
     Dosage: UNK, UNKNOWN
     Route: 065
  3. FLOLAN [Suspect]
     Active Substance: EPOPROSTENOL SODIUM
     Indication: PULMONARY ARTERIAL HYPERTENSION
     Dosage: 19.9 NG, OTHER
     Route: 042
     Dates: start: 20030821
  4. SILDENAFIL CITRATE. [Concomitant]
     Active Substance: SILDENAFIL CITRATE
     Dosage: UNK, UNKNOWN
     Route: 065

REACTIONS (18)
  - Insomnia [Unknown]
  - Arthritis [Unknown]
  - Fibromyalgia [Unknown]
  - Anaemia [Unknown]
  - Sleep terror [Unknown]
  - Oral discomfort [Unknown]
  - Thyroid disorder [Unknown]
  - Diarrhoea [Unknown]
  - Nausea [Unknown]
  - Hyperhidrosis [Unknown]
  - Device dislocation [Unknown]
  - Urinary tract infection [Unknown]
  - Influenza [Unknown]
  - Hot flush [Unknown]
  - Medical device complication [Recovered/Resolved]
  - Vomiting [Unknown]
  - Drug withdrawal syndrome [Unknown]
  - Weight decreased [Unknown]

NARRATIVE: CASE EVENT DATE: 2013
